FAERS Safety Report 6401256-6 (Version None)
Quarter: 2009Q4

REPORT INFORMATION
  Report Type: 
  Country: None (occurrence: None)
  Receive Date: 20091015
  Receipt Date: 20091008
  Transmission Date: 20100525
  Serious: Yes (Hospitalization, Other)
  Sender: FDA-Public Use
  Company Number: US-JNJFOC-20081100405

PATIENT
  Sex: Female
  Weight: 61.24 kg

DRUGS (5)
  1. DURAGESIC-100 [Suspect]
     Dosage: NDC# 504803305
     Route: 062
     Dates: start: 19910101
  2. DURAGESIC-100 [Suspect]
     Indication: BACK PAIN
     Dosage: 75 UG/HR (25+25+25) THREE IN 72 HOURS
     Route: 062
     Dates: start: 19910101
  3. PERCOCET [Concomitant]
     Route: 048
  4. SOMA [Concomitant]
     Indication: MUSCLE RELAXANT THERAPY
     Route: 048
  5. CYMBALTA [Concomitant]
     Indication: DEPRESSION
     Route: 048
     Dates: start: 20080101

REACTIONS (12)
  - APTYALISM [None]
  - BACK DISORDER [None]
  - CONSTIPATION [None]
  - DEPRESSION [None]
  - DRUG INEFFECTIVE [None]
  - DRY MOUTH [None]
  - HOSPITALISATION [None]
  - INAPPROPRIATE SCHEDULE OF DRUG ADMINISTRATION [None]
  - INSOMNIA [None]
  - PANCREATITIS [None]
  - TOOTH LOSS [None]
  - WEIGHT DECREASED [None]
